FAERS Safety Report 5414937-8 (Version None)
Quarter: 2007Q3

REPORT INFORMATION
  Report Type: 
  Country: None (occurrence: None)
  Receive Date: 20070815
  Receipt Date: 20070806
  Transmission Date: 20080115
  Serious: Yes (Other)
  Sender: FDA-Public Use
  Company Number: PHFR2007GB02396

PATIENT
  Sex: Male

DRUGS (2)
  1. AZATHIOPRINE [Concomitant]
     Indication: PSORIASIS
     Route: 065
  2. FAMCICLOVIR [Suspect]
     Indication: HERPES ZOSTER
     Route: 065

REACTIONS (1)
  - CONVULSION [None]
